FAERS Safety Report 21781583 (Version 1)
Quarter: 2022Q4

REPORT INFORMATION
  Report Type: Report from Study
  Country: US (occurrence: US)
  Receive Date: 20221227
  Receipt Date: 20221227
  Transmission Date: 20230113
  Serious: No
  Sender: FDA-Public Use
  Company Number: US-ABBVIE-4245086

PATIENT
  Age: 31 Year
  Sex: Female

DRUGS (1)
  1. HUMIRA [Suspect]
     Active Substance: ADALIMUMAB
     Indication: Product used for unknown indication
     Dosage: FORM STRENGTH: 40 MILLIGRAM
     Route: 058
     Dates: start: 20201010

REACTIONS (9)
  - Condition aggravated [Not Recovered/Not Resolved]
  - Therapeutic product effect decreased [Unknown]
  - Ankylosing spondylitis [Unknown]
  - Device issue [Not Recovered/Not Resolved]
  - Feeling hot [Unknown]
  - Hyperhidrosis [Unknown]
  - Pain [Unknown]
  - Injection site bruising [Unknown]
  - Incorrect dose administered [Unknown]

NARRATIVE: CASE EVENT DATE: 20221220
